FAERS Safety Report 9117194 (Version 1)
Quarter: 2013Q1

REPORT INFORMATION
  Report Type: Spontaneous
  Country: CA (occurrence: CA)
  Receive Date: 20130225
  Receipt Date: 20130225
  Transmission Date: 20140127
  Serious: Yes (Other)
  Sender: FDA-Public Use
  Company Number: CA-BAYER-2013-021578

PATIENT
  Age: 27 Year
  Sex: Male

DRUGS (1)
  1. BETASERON [Suspect]
     Indication: RELAPSING-REMITTING MULTIPLE SCLEROSIS
     Dosage: 0.5 MG, QD
     Dates: start: 200408, end: 201103

REACTIONS (4)
  - Optic neuritis [None]
  - Optic neuritis [None]
  - Blindness unilateral [None]
  - Inappropriate schedule of drug administration [None]
